FAERS Safety Report 8281901-3 (Version None)
Quarter: 2012Q2

REPORT INFORMATION
  Report Type: 
  Country: None (occurrence: None)
  Receive Date: 20120413
  Receipt Date: 20120411
  Transmission Date: 20120825
  Serious: Yes (Hospitalization, Other)
  Sender: FDA-Public Use
  Company Number: PHHY2012AU027516

PATIENT
  Sex: Male

DRUGS (2)
  1. EXJADE [Suspect]
     Indication: IRON OVERLOAD
     Dosage: 1.5 G, DAILY
     Route: 048
     Dates: start: 20070501, end: 20120101
  2. EXJADE [Suspect]
     Indication: CHELATION THERAPY

REACTIONS (10)
  - GASTRIC ULCER [None]
  - HAEMATOCHEZIA [None]
  - MELAENA [None]
  - NEPHROLITHIASIS [None]
  - RENAL COLIC [None]
  - ABDOMINAL PAIN [None]
  - VOMITING [None]
  - HAEMATEMESIS [None]
  - NAUSEA [None]
  - ABDOMINAL PAIN UPPER [None]
